FAERS Safety Report 8874127 (Version 1)
Quarter: 2012Q4

REPORT INFORMATION
  Report Type: 
  Country: US (occurrence: US)
  Receive Date: 20121031
  Receipt Date: 20121031
  Transmission Date: 20130627
  Serious: No
  Sender: FDA-Public Use
  Company Number: US-009507513-1210USA002315

PATIENT
  Sex: Male

DRUGS (2)
  1. TICE BCG LIVE [Suspect]
     Dosage: UNK
     Dates: start: 20120906, end: 20120906
  2. AFLURIA [Suspect]
     Indication: PROPHYLAXIS
     Dates: start: 20120904, end: 20120904

REACTIONS (2)
  - Influenza like illness [Unknown]
  - Decreased appetite [Unknown]
